FAERS Safety Report 5836366-5 (Version None)
Quarter: 2008Q3

REPORT INFORMATION
  Report Type: 
  Country: None (occurrence: None)
  Receive Date: 20080807
  Receipt Date: 20080728
  Transmission Date: 20090109
  Serious: Yes (Other)
  Sender: FDA-Public Use
  Company Number: US-PURDUE-USA_2008_0033726

PATIENT
  Age: 71 Year
  Sex: Female
  Weight: 62 kg

DRUGS (4)
  1. COLACE CAPSULES 100 MG [Suspect]
     Indication: POST PROCEDURAL CONSTIPATION
     Dosage: 100 MG, SINGLE
     Dates: start: 20080623, end: 20080623
  2. VAGIFEM [Concomitant]
  3. VITAMINS, OTHER COMBINATIONS [Concomitant]
  4. OXYCODONE HCL [Concomitant]

REACTIONS (8)
  - ANGIOEDEMA [None]
  - CHEST PAIN [None]
  - DEFAECATION URGENCY [None]
  - DRUG HYPERSENSITIVITY [None]
  - PRURITUS [None]
  - RASH ERYTHEMATOUS [None]
  - SENSATION OF FOREIGN BODY [None]
  - URTICARIA [None]
